FAERS Safety Report 24567479 (Version 1)
Quarter: 2024Q4

REPORT INFORMATION
  Report Type: Report from Study
  Country: ZA (occurrence: ZA)
  Receive Date: 20241030
  Receipt Date: 20241030
  Transmission Date: 20250115
  Serious: Yes (Hospitalization)
  Sender: ABBVIE
  Company Number: ZA-ABBVIE-5984387

PATIENT
  Age: 72 Year
  Sex: Male

DRUGS (4)
  1. BOTOX [Suspect]
     Active Substance: ONABOTULINUMTOXINA
     Indication: Torticollis
     Dosage: TIME INTERVAL: AS NECESSARY: TOTAL DOSE 150U (50U + 100U)?BOTOX FREQUENCY WAS REPORTED AS EVERY F...
     Route: 065
     Dates: start: 20240206, end: 20240206
  2. BOTOX [Suspect]
     Active Substance: ONABOTULINUMTOXINA
     Indication: Torticollis
     Dosage: TIME INTERVAL: AS NECESSARY: TOTAL DOSE 150U (50U + 100U)?BOTOX FREQUENCY WAS REPORTED AS EVERY F...
     Route: 065
     Dates: start: 20240806, end: 20240806
  3. BOTOX [Suspect]
     Active Substance: ONABOTULINUMTOXINA
     Indication: Torticollis
     Dosage: TIME INTERVAL: AS NECESSARY: TOTAL DOSE 150U (50U + 100U)?BOTOX FREQUENCY WAS REPORTED AS EVERY F...
     Route: 065
     Dates: start: 20240206, end: 20240206
  4. BOTOX [Suspect]
     Active Substance: ONABOTULINUMTOXINA
     Indication: Torticollis
     Dosage: TIME INTERVAL: AS NECESSARY: TOTAL DOSE 150U (50U + 100U)?BOTOX FREQUENCY WAS REPORTED AS EVERY F...
     Route: 065
     Dates: start: 20240806, end: 20240806

REACTIONS (1)
  - Deep brain stimulation [Unknown]

NARRATIVE: CASE EVENT DATE: 20240101
